FAERS Safety Report 11590308 (Version 4)
Quarter: 2016Q3

REPORT INFORMATION
  Report Type: Spontaneous
  Country: US (occurrence: US)
  Receive Date: 20151002
  Receipt Date: 20160712
  Transmission Date: 20161109
  Serious: Yes (Death, Hospitalization, Other)
  Sender: FDA-Public Use
  Company Number: US-PFIZER INC-2015260137

PATIENT
  Age: 70 Year
  Sex: Female

DRUGS (11)
  1. LANTUS [Concomitant]
     Active Substance: INSULIN GLARGINE
     Dosage: UNK
  2. LACTULOSE. [Concomitant]
     Active Substance: LACTULOSE
     Dosage: UNK
  3. GLIPIZIDE. [Concomitant]
     Active Substance: GLIPIZIDE
     Dosage: 10 MG, 2X/DAY
  4. FLORANEX [Concomitant]
     Active Substance: LACTOBACILLUS ACIDOPHILUS\LACTOBACILLUS DELBRUECKII SUBSP. BULGARICUS
     Dosage: UNK
  5. METFORMIN HCL [Concomitant]
     Active Substance: METFORMIN HYDROCHLORIDE
     Indication: DIABETES MELLITUS
     Dosage: 1000 MG, 2X/DAY
  6. OMEPRAZOLE. [Concomitant]
     Active Substance: OMEPRAZOLE
     Dosage: 20 MG, DAILY
  7. SPIRONOLACTONE. [Concomitant]
     Active Substance: SPIRONOLACTONE
     Dosage: UNK
  8. LYRICA [Suspect]
     Active Substance: PREGABALIN
     Indication: PAIN IN EXTREMITY
     Dosage: 150 MG, 2X/DAY
     Route: 048
  9. FUROSEMIDE. [Concomitant]
     Active Substance: FUROSEMIDE
     Dosage: 20 MG, DAILY
  10. XIFAXAN [Concomitant]
     Active Substance: RIFAXIMIN
     Dosage: UNK
  11. NADOLOL. [Concomitant]
     Active Substance: NADOLOL
     Dosage: 40 MG, DAILY (80MG, ONE HALF FOR 40 MG DAILY)

REACTIONS (17)
  - Fluid retention [Unknown]
  - Asthenia [Unknown]
  - Haematochezia [Unknown]
  - Blood pressure decreased [Unknown]
  - Malaise [Unknown]
  - Sepsis [Unknown]
  - Fall [Unknown]
  - Swelling [Unknown]
  - Belligerence [Unknown]
  - Renal failure [Fatal]
  - Haemoglobin decreased [Unknown]
  - Platelet count decreased [Unknown]
  - Blood glucose increased [Unknown]
  - Haemorrhage [Unknown]
  - Liver disorder [Fatal]
  - Mental impairment [Unknown]
  - Intentional product misuse [Unknown]

NARRATIVE: CASE EVENT DATE: 2016
